FAERS Safety Report 17654212 (Version 4)
Quarter: 2020Q3

REPORT INFORMATION
  Report Type: Report from Study
  Country: US (occurrence: US)
  Receive Date: 20200410
  Receipt Date: 20200910
  Transmission Date: 20201102
  Serious: Yes (Hospitalization)
  Sender: FDA-Public Use
  Company Number: NVSC2020US096661

PATIENT
  Sex: Female

DRUGS (2)
  1. ENTRESTO [Suspect]
     Active Substance: SACUBITRIL\VALSARTAN
     Route: 048
  2. ENTRESTO [Suspect]
     Active Substance: SACUBITRIL\VALSARTAN
     Indication: PRODUCT USED FOR UNKNOWN INDICATION
     Dosage: 49 MG, BID (1/2 TABS ON SUN, TUES, THURS AND SAT, WHOLE TABS REST OF THE DAYS)
     Route: 048

REACTIONS (3)
  - Transient ischaemic attack [Unknown]
  - Wrong technique in product usage process [Unknown]
  - Blood potassium decreased [Unknown]
